FAERS Safety Report 21923057 (Version 7)
Quarter: 2023Q2

REPORT INFORMATION
  Report Type: Spontaneous
  Country: US (occurrence: US)
  Receive Date: 20230129
  Receipt Date: 20230609
  Transmission Date: 20230721
  Serious: Yes (Other)
  Sender: FDA-Public Use
  Company Number: US-BRISTOL-MYERS SQUIBB COMPANY-2023-011153

PATIENT
  Age: 74 Year
  Sex: Male
  Weight: 64.41 kg

DRUGS (3)
  1. REVLIMID [Suspect]
     Active Substance: LENALIDOMIDE
     Indication: Plasma cell myeloma
     Dosage: DAILY 1 TO 14, THEN 7 DAYS OFF
     Route: 048
     Dates: start: 20230120
  2. REVLIMID [Suspect]
     Active Substance: LENALIDOMIDE
     Dosage: DAILY 1 TO 14, THEN 7 DAYS OFF/DAILY X 14 DAYS ON AND 7 DAYS OFF
     Route: 048
  3. REVLIMID [Suspect]
     Active Substance: LENALIDOMIDE
     Dosage: D1-21 Q28 DAYS
     Route: 048

REACTIONS (13)
  - Asthenia [Not Recovered/Not Resolved]
  - Urinary retention [Not Recovered/Not Resolved]
  - Constipation [Not Recovered/Not Resolved]
  - Nausea [Not Recovered/Not Resolved]
  - Off label use [Unknown]
  - Dizziness postural [Not Recovered/Not Resolved]
  - Paraesthesia [Unknown]
  - Red blood cell count decreased [Not Recovered/Not Resolved]
  - Neuropathy peripheral [Not Recovered/Not Resolved]
  - Spinal cord neoplasm [Not Recovered/Not Resolved]
  - Monoplegia [Not Recovered/Not Resolved]
  - Hypoaesthesia [Not Recovered/Not Resolved]
  - Fall [Not Recovered/Not Resolved]

NARRATIVE: CASE EVENT DATE: 20230201
